FAERS Safety Report 7130530-3 (Version None)
Quarter: 2010Q4

REPORT INFORMATION
  Report Type: 
  Country: None (occurrence: None)
  Receive Date: 20101201
  Receipt Date: 20060907
  Transmission Date: 20110411
  Serious: Yes (Other)
  Sender: FDA-Public Use
  Company Number: PHHY2006AU02713

PATIENT
  Age: 28 Year
  Sex: Female

DRUGS (4)
  1. NEORAL [Suspect]
     Indication: HEART AND LUNG TRANSPLANT
     Dosage: UNK
  2. NEORAL [Suspect]
     Indication: IMMUNOSUPPRESSANT DRUG THERAPY
  3. PREDNISOLONE [Concomitant]
     Indication: IMMUNOSUPPRESSANT DRUG THERAPY
  4. CELLCEPT [Concomitant]
     Indication: IMMUNOSUPPRESSANT DRUG THERAPY

REACTIONS (2)
  - IMMUNOSUPPRESSANT DRUG LEVEL DECREASED [None]
  - MALABSORPTION [None]
